FAERS Safety Report 23948352 (Version 1)
Quarter: 2024Q2

REPORT INFORMATION
  Report Type: Spontaneous
  Country: RO (occurrence: RO)
  Receive Date: 20240607
  Receipt Date: 20240607
  Transmission Date: 20240716
  Serious: Yes (Other)
  Sender: FDA-Public Use
  Company Number: RO-OPELLA-2024OHG019909

PATIENT
  Sex: Female

DRUGS (2)
  1. XYZAL [Suspect]
     Active Substance: LEVOCETIRIZINE DIHYDROCHLORIDE
     Indication: Rash
     Dosage: ONE TABLET, IN THE EVENING; ONE SINGLE ADMINISTRATION
     Route: 048
     Dates: start: 20240506
  2. XYZAL [Suspect]
     Active Substance: LEVOCETIRIZINE DIHYDROCHLORIDE
     Indication: Arthropod bite

REACTIONS (15)
  - Near death experience [Recovered/Resolved]
  - Dysphagia [Recovering/Resolving]
  - Peau d^orange [Unknown]
  - Lip swelling [Recovered/Resolved]
  - Pharyngeal swelling [Recovering/Resolving]
  - Blood pressure decreased [Recovered/Resolved]
  - Feeling hot [Recovered/Resolved]
  - Dyspepsia [Recovered/Resolved]
  - Dizziness [Recovered/Resolved]
  - Pruritus [Recovering/Resolving]
  - Nausea [Recovered/Resolved]
  - Syncope [Recovered/Resolved]
  - Rash [Unknown]
  - Abdominal pain [Recovering/Resolving]
  - Product use in unapproved indication [Unknown]

NARRATIVE: CASE EVENT DATE: 20240506
